FAERS Safety Report 17346335 (Version 1)
Quarter: 2020Q1

REPORT INFORMATION
  Report Type: Report from Study
  Country: US (occurrence: US)
  Receive Date: 20200129
  Receipt Date: 20200129
  Transmission Date: 20200409
  Serious: No
  Sender: FDA-Public Use
  Company Number: US-EXELIXIS-CABO-19022617

PATIENT
  Age: 50 Year
  Sex: Male

DRUGS (3)
  1. CABOMETYX [Suspect]
     Active Substance: CABOZANTINIB S-MALATE
     Dosage: 20 MG, UNK
     Dates: start: 20190805
  2. CABOMETYX [Suspect]
     Active Substance: CABOZANTINIB S-MALATE
     Dosage: 40 MG, UNK
     Dates: start: 20190719, end: 20190723
  3. CABOMETYX [Suspect]
     Active Substance: CABOZANTINIB S-MALATE
     Indication: HEPATIC CANCER
     Dosage: 60 MG, UNK
     Dates: start: 20190627, end: 20190714

REACTIONS (10)
  - Erythema [Recovered/Resolved]
  - Pain [Recovered/Resolved]
  - Thrombosis [Unknown]
  - Penile oedema [Recovered/Resolved]
  - Temperature intolerance [Recovered/Resolved]
  - Back pain [Unknown]
  - Malignant neoplasm progression [Unknown]
  - Blood pressure diastolic increased [Unknown]
  - Dysphonia [Recovered/Resolved]
  - Headache [Recovered/Resolved]

NARRATIVE: CASE EVENT DATE: 20190807
